FAERS Safety Report 25995284 (Version 4)
Quarter: 2025Q4

REPORT INFORMATION
  Report Type: Report from Study
  Country: EU (occurrence: EU)
  Receive Date: 20251104
  Receipt Date: 20251212
  Transmission Date: 20260117
  Serious: Yes (Hospitalization)
  Sender: ABBVIE
  Company Number: EU-ABBVIE-6519305

PATIENT
  Age: 92 Year
  Sex: Male

DRUGS (1)
  1. FOSCARBIDOPA\FOSLEVODOPA [Suspect]
     Active Substance: FOSCARBIDOPA\FOSLEVODOPA
     Indication: Parkinson^s disease
     Dosage: CR: 0.35 ML/H, CRH: 0.37 ML/H, CRN: 0.20 ML/H, ED: 0.15 ML.
     Route: 058
     Dates: start: 20250822

REACTIONS (5)
  - Loss of consciousness [Recovered/Resolved]
  - Catheter site erythema [Not Recovered/Not Resolved]
  - Renal failure [Recovered/Resolved]
  - Hallucination [Not Recovered/Not Resolved]
  - Fluid intake reduced [Unknown]

NARRATIVE: CASE EVENT DATE: 20250101
